FAERS Safety Report 4777922-5 (Version None)
Quarter: 2005Q3

REPORT INFORMATION
  Report Type: 
  Country: None (occurrence: None)
  Receive Date: 20050923
  Receipt Date: 20050910
  Transmission Date: 20060218
  Serious: Yes (Hospitalization)
  Sender: FDA-Public Use
  Company Number: GXKR2005SE01633

PATIENT
  Age: 15 Year
  Sex: Female

DRUGS (1)
  1. BIOCLAVID (NGX) (AMOXICILLIN, CLAVULANATE) [Suspect]
     Dosage: 1 G, QD, ORAL
     Route: 048
     Dates: start: 20050501, end: 20050601

REACTIONS (8)
  - ABDOMINAL PAIN [None]
  - ALANINE AMINOTRANSFERASE INCREASED [None]
  - ASPARTATE AMINOTRANSFERASE INCREASED [None]
  - CHOLANGITIS [None]
  - HAEMOGLOBIN DECREASED [None]
  - HEPATIC PAIN [None]
  - JAUNDICE [None]
  - SPLEEN DISORDER [None]
